FAERS Safety Report 4606842-1 (Version None)
Quarter: 2005Q1

REPORT INFORMATION
  Report Type: 
  Country: None (occurrence: None)
  Receive Date: 20050310
  Receipt Date: 20050214
  Transmission Date: 20050727
  Serious: Yes (Hospitalization)
  Sender: FDA-Public Use
  Company Number: 018-05

PATIENT
  Age: 62 Year
  Sex: Male
  Weight: 113.8529 kg

DRUGS (6)
  1. LISINOPRIL [Suspect]
     Indication: HYPERTENSION
     Dosage: 10 MG ONCE DAILY PO
     Route: 048
     Dates: start: 20041016, end: 19050211
  2. DYAZIDE [Concomitant]
  3. GLIPIZIDE [Concomitant]
  4. LIPITOR [Concomitant]
  5. NAPROXEN [Concomitant]
  6. ASPIRIN [Concomitant]

REACTIONS (3)
  - DYSARTHRIA [None]
  - DYSPNOEA [None]
  - PARAESTHESIA ORAL [None]
